FAERS Safety Report 17117443 (Version 2)
Quarter: 2019Q4

REPORT INFORMATION
  Report Type: Spontaneous
  Country: GR (occurrence: GR)
  Receive Date: 20191205
  Receipt Date: 20191218
  Transmission Date: 20200122
  Serious: Yes (Hospitalization, Other)
  Sender: FDA-Public Use
  Company Number: GR-ALLERGAN-1949408US

PATIENT
  Sex: Female

DRUGS (3)
  1. QUETIAPINE. [Suspect]
     Active Substance: QUETIAPINE
     Indication: NEUROLOGICAL SYMPTOM
     Dosage: 400 MG, QD
     Route: 065
  2. MEMANTINE HCL - BP [Suspect]
     Active Substance: MEMANTINE
     Indication: NEUROLOGICAL SYMPTOM
     Dosage: 10 MG, QD
     Route: 065
  3. FLECAINIDE [Suspect]
     Active Substance: FLECAINIDE
     Indication: ATRIAL FIBRILLATION
     Dosage: 100 MG, BID
     Route: 065

REACTIONS (13)
  - Blood pressure decreased [Recovered/Resolved]
  - Electrocardiogram QRS complex prolonged [Recovering/Resolving]
  - Oliguria [Recovering/Resolving]
  - Metabolic acidosis [Recovering/Resolving]
  - Vomiting [Recovering/Resolving]
  - Blood urea increased [Recovering/Resolving]
  - Complication associated with device [Recovered/Resolved]
  - Electrocardiogram QT prolonged [Recovering/Resolving]
  - Off label use [Unknown]
  - Depressed level of consciousness [Recovered/Resolved]
  - Acute kidney injury [Recovering/Resolving]
  - Blood creatinine increased [Recovering/Resolving]
  - Diarrhoea [Recovering/Resolving]
